FAERS Safety Report 17577204 (Version 1)
Quarter: 2020Q1

REPORT INFORMATION
  Report Type: Spontaneous
  Country: CN (occurrence: CN)
  Receive Date: 20200324
  Receipt Date: 20200324
  Transmission Date: 20200409
  Serious: No
  Sender: FDA-Public Use
  Company Number: CN-B.I. PHARMACEUTICALS,INC./RIDGEFIELD-2020-BI-015777

PATIENT
  Age: 56 Year
  Sex: Female

DRUGS (2)
  1. METFORMIN HYDROCHLORIDE. [Concomitant]
     Active Substance: METFORMIN HYDROCHLORIDE
     Indication: DRUG THERAPY
     Route: 048
     Dates: start: 20200303, end: 20200309
  2. JARDIANCE [Suspect]
     Active Substance: EMPAGLIFLOZIN
     Indication: BLOOD GLUCOSE INCREASED
     Route: 042
     Dates: start: 20200303, end: 20200311

REACTIONS (1)
  - Urine ketone body present [Recovering/Resolving]

NARRATIVE: CASE EVENT DATE: 20200303
